FAERS Safety Report 25806717 (Version 1)
Quarter: 2025Q3

REPORT INFORMATION
  Report Type: Report from Study
  Country: KR (occurrence: KR)
  Receive Date: 20250916
  Receipt Date: 20250916
  Transmission Date: 20251020
  Serious: Yes (Hospitalization)
  Sender: TAKEDA
  Company Number: KR-TAKEDA-2024TUS066100

PATIENT
  Age: 58 Year
  Sex: Female
  Weight: 51 kg

DRUGS (10)
  1. VEDOLIZUMAB [Suspect]
     Active Substance: VEDOLIZUMAB
     Indication: Crohn^s disease
  2. PENTASA [Concomitant]
     Active Substance: MESALAMINE
     Dosage: UNK UNK, QD
     Dates: start: 20210819
  3. Solondo [Concomitant]
     Dosage: 5 MILLIGRAM, QD
     Dates: start: 20220203, end: 20230129
  4. METOCLOPRAMIDE HYDROCHLORIDE [Concomitant]
     Active Substance: METOCLOPRAMIDE HYDROCHLORIDE
     Indication: Epiploic appendagitis
     Dosage: 5 MILLIGRAM, TID
     Dates: start: 20230812, end: 20230816
  5. BUTYLSCOPOLAMINE BROMIDE\METAMIZOLE SODIUM [Concomitant]
     Active Substance: BUTYLSCOPOLAMINE BROMIDE\METAMIZOLE SODIUM
     Dosage: 10 MILLIGRAM, TID
     Dates: start: 20230812, end: 20230817
  6. GASTER [Concomitant]
     Active Substance: FAMOTIDINE
     Dosage: 20 MILLIGRAM, BID
     Dates: start: 20230812, end: 20230817
  7. Agio [Concomitant]
     Dosage: UNK UNK, BID
     Dates: start: 20230203, end: 20230219
  8. HERBALS [Concomitant]
     Active Substance: HERBALS
     Dosage: UNK UNK, BID
     Dates: start: 20230203, end: 20230219
  9. Silcon [Concomitant]
     Dosage: UNK UNK, BID
     Dates: start: 20230203, end: 20230219
  10. REMICADE [Concomitant]
     Active Substance: INFLIXIMAB
     Dosage: 500 MILLIGRAM, MONTHLY
     Dates: start: 20170519, end: 20220915

REACTIONS (1)
  - Epiploic appendagitis [Recovered/Resolved]

NARRATIVE: CASE EVENT DATE: 20230812
